FAERS Safety Report 4939075-X (Version None)
Quarter: 2006Q1

REPORT INFORMATION
  Report Type: 
  Country: None (occurrence: None)
  Receive Date: 20060306
  Receipt Date: 20060224
  Transmission Date: 20060701
  Serious: Yes (Hospitalization)
  Sender: FDA-Public Use
  Company Number: 222583

PATIENT
  Age: 70 Year
  Sex: Female
  Weight: 68 kg

DRUGS (2)
  1. AVASTIN [Suspect]
     Indication: COLORECTAL CANCER METASTATIC
     Dosage: 5 MG/KG, Q2W, INTRAVENOUS
     Route: 042
  2. CEFOXITIN (CEFOXITIN) [Concomitant]

REACTIONS (4)
  - HYPERTENSION [None]
  - NEPHROTIC SYNDROME [None]
  - RENAL FAILURE [None]
  - URINARY TRACT INFECTION [None]
